FAERS Safety Report 9846229 (Version 1)
Quarter: 2014Q1

REPORT INFORMATION
  Report Type: Spontaneous
  Country: US (occurrence: US)
  Receive Date: 20140127
  Receipt Date: 20140127
  Transmission Date: 20141002
  Serious: No
  Sender: FDA-Public Use
  Company Number: US-BAYER-2014-012648

PATIENT
  Age: 72 Year
  Sex: Male

DRUGS (1)
  1. GADAVIST [Suspect]
     Indication: ABDOMEN SCAN
     Dosage: 10 ML, ONCE
     Dates: start: 20140118, end: 20140118

REACTIONS (3)
  - Feeling hot [Recovered/Resolved]
  - Urticaria [Recovered/Resolved]
  - Pruritus [Recovered/Resolved]
